FAERS Safety Report 7028429-6 (Version None)
Quarter: 2010Q4

REPORT INFORMATION
  Report Type: 
  Country: None (occurrence: None)
  Receive Date: 20101005
  Receipt Date: 20100922
  Transmission Date: 20110411
  Serious: Yes (Other)
  Sender: FDA-Public Use
  Company Number: JP-ROCHE-729708

PATIENT
  Age: 72 Year
  Sex: Male

DRUGS (2)
  1. TICLOPIDINE HCL [Suspect]
     Indication: ANTIPLATELET THERAPY
     Route: 065
  2. ASPIRIN [Suspect]
     Indication: ANTIPLATELET THERAPY
     Route: 065

REACTIONS (1)
  - HAEMATOCHEZIA [None]
